FAERS Safety Report 8144482-0 (Version None)
Quarter: 2012Q1

REPORT INFORMATION
  Report Type: 
  Country: None (occurrence: None)
  Receive Date: 20120217
  Receipt Date: 20120208
  Transmission Date: 20120608
  Serious: Yes (Other)
  Sender: FDA-Public Use
  Company Number: IT-ALLERGAN-1200866US

PATIENT
  Age: 39 Year
  Sex: Female

DRUGS (1)
  1. OZURDEX [Suspect]
     Indication: MACULAR OEDEMA
     Dosage: UNK
     Route: 031
     Dates: start: 20111209, end: 20111209

REACTIONS (2)
  - COMPLICATION OF DEVICE INSERTION [None]
  - DEVICE DEPLOYMENT ISSUE [None]
